FAERS Safety Report 9652055 (Version 1)
Quarter: 2013Q4

REPORT INFORMATION
  Report Type: Spontaneous
  Country: None (occurrence: None)
  Receive Date: 20131025
  Receipt Date: 20131025
  Transmission Date: 20140711
  Serious: Yes (Hospitalization)
  Sender: FDA-Public Use
  Company Number: 151887

PATIENT
  Sex: Female

DRUGS (4)
  1. CARBOPLATIN [Suspect]
     Indication: UTERINE CANCER
  2. CARBOPLATIN [Suspect]
     Indication: OVARIAN CANCER
  3. PACLITAXEL [Suspect]
     Indication: OVARIAN CANCER
  4. PACLITAXEL [Suspect]
     Indication: UTERINE CANCER

REACTIONS (1)
  - Posterior reversible encephalopathy syndrome [None]
